FAERS Safety Report 19587845 (Version 33)
Quarter: 2023Q1

REPORT INFORMATION
  Report Type: Spontaneous
  Country: GB (occurrence: GB)
  Receive Date: 20210721
  Receipt Date: 20230209
  Transmission Date: 20230417
  Serious: Yes (Other)
  Sender: FDA-Public Use
  Company Number: GB-EMA-DD-20180104-NIMMIEVHP-083539

PATIENT
  Age: 73 Year
  Sex: Female
  Weight: 50 kg

DRUGS (72)
  1. ALLOPURINOL [Suspect]
     Active Substance: ALLOPURINOL
     Indication: Product used for unknown indication
     Dosage: 300 MILLIGRAM, QD 300 MG, DAILY, DOSAGE FORM: UNSPECIFIED
     Route: 065
     Dates: start: 20171104, end: 20171120
  2. ALLOPURINOL [Suspect]
     Active Substance: ALLOPURINOL
     Dosage: 30 MILLIGRAM, QD 30 MG, DOSAGE FORM: UNSPECIFIED
     Route: 065
     Dates: start: 20171104, end: 20171120
  3. ALLOPURINOL [Suspect]
     Active Substance: ALLOPURINOL
     Dosage: 300 MILLIGRAM, QD 300 MG, DAILY, DOSAGE FORM: UNSPECIFIED
     Route: 065
     Dates: start: 20171120
  4. ALLOPURINOL [Suspect]
     Active Substance: ALLOPURINOL
     Dosage: 300 MILLIGRAM, QD
     Route: 065
     Dates: start: 20181120
  5. BORTEZOMIB [Suspect]
     Active Substance: BORTEZOMIB
     Indication: Plasma cell leukaemia
     Dosage: 1.8 MILLIGRAM
     Route: 058
     Dates: start: 20171110, end: 20171114
  6. BORTEZOMIB [Suspect]
     Active Substance: BORTEZOMIB
     Dosage: 1.3 MILLIGRAM/SQ. METER (CYCLICAL)
     Route: 058
     Dates: start: 20171103, end: 20171103
  7. BORTEZOMIB [Suspect]
     Active Substance: BORTEZOMIB
     Dosage: 1.3 MILLIGRAM/SQ. METER (CYCLICAL)
     Route: 058
     Dates: start: 20171106, end: 20171106
  8. BORTEZOMIB [Suspect]
     Active Substance: BORTEZOMIB
     Dosage: 1.3 MILLIGRAM/SQ. METER (CYCLICAL)
     Route: 058
     Dates: start: 20171110, end: 20171110
  9. BORTEZOMIB [Suspect]
     Active Substance: BORTEZOMIB
     Dosage: 1.8 MILLIGRAM/SQ. METER
     Route: 058
     Dates: start: 20171107, end: 201711
  10. DEXAMETHASONE [Suspect]
     Active Substance: DEXAMETHASONE
     Indication: Product used for unknown indication
     Dosage: 20 MILLIGRAM, QD
     Route: 065
     Dates: start: 20171102, end: 20171106
  11. DEXAMETHASONE [Suspect]
     Active Substance: DEXAMETHASONE
     Dosage: 20 MILLIGRAM, QD
     Route: 065
  12. FENTANYL [Suspect]
     Active Substance: FENTANYL
     Indication: Product used for unknown indication
     Dosage: 12 MICROGRAM, UNK
     Route: 055
     Dates: start: 20171108
  13. FENTANYL [Suspect]
     Active Substance: FENTANYL
     Dosage: 4 MICROGRAM
     Route: 062
     Dates: start: 20171108
  14. MELPHALAN [Suspect]
     Active Substance: MELPHALAN
     Indication: Plasma cell leukaemia
     Dosage: 14 MILLIGRAM, DAILY VMP REGIMEN, DAY 1 TO 4, CYCLE 2
     Route: 065
     Dates: start: 20171103, end: 20171103
  15. MELPHALAN [Suspect]
     Active Substance: MELPHALAN
     Dosage: 14 MILLIGRAM, DAILY DOSAGE FORM: UNSPECIFIED
     Route: 065
     Dates: start: 20171107, end: 20171110
  16. MELPHALAN [Suspect]
     Active Substance: MELPHALAN
     Dosage: 14 MILLIGRAM, DAILY 14 MILLIGRAM, DAILY (VMP REGIMEN, DAY 1 TO 4, CYCLE 2)
     Route: 065
     Dates: start: 20171103, end: 20171103
  17. MELPHALAN [Suspect]
     Active Substance: MELPHALAN
     Dosage: UNK, DAILY CYCLE 1, VMP REGIMEN; CYCLICAL, DAILY
     Route: 065
     Dates: start: 20171110, end: 20171114
  18. MELPHALAN [Suspect]
     Active Substance: MELPHALAN
     Dosage: UNK
     Route: 065
     Dates: start: 20171106, end: 20171106
  19. MELPHALAN [Suspect]
     Active Substance: MELPHALAN
     Dosage: 14 MILLIGRAM, DAILY
     Route: 065
     Dates: start: 20171103, end: 20171103
  20. MELPHALAN [Suspect]
     Active Substance: MELPHALAN
     Dosage: 14 MILLIGRAM, 1 CYCLE
     Route: 065
     Dates: start: 20171107, end: 20171110
  21. MELPHALAN [Suspect]
     Active Substance: MELPHALAN
     Dosage: 42 MILLIGRAM
     Route: 065
     Dates: start: 20171110, end: 20171110
  22. MELPHALAN [Suspect]
     Active Substance: MELPHALAN
     Dosage: 42 MILLIGRAM
     Route: 065
     Dates: start: 20171106, end: 20171106
  23. MELPHALAN [Suspect]
     Active Substance: MELPHALAN
     Dosage: 42 MG
     Route: 065
     Dates: start: 201711, end: 201711
  24. PREDNISONE [Suspect]
     Active Substance: PREDNISONE
     Indication: Plasma cell leukaemia
     Dosage: UNK (CYCLICAL)
     Route: 065
  25. PREDNISONE [Suspect]
     Active Substance: PREDNISONE
     Dosage: 70 MILLIGRAM, QD
     Route: 065
     Dates: start: 20171103, end: 20171103
  26. PREDNISONE [Suspect]
     Active Substance: PREDNISONE
     Dosage: 70 MILLIGRAM, QD (1 CYCLE)
     Route: 065
     Dates: start: 20171106, end: 20171106
  27. SERTRALINE [Suspect]
     Active Substance: SERTRALINE HYDROCHLORIDE
     Indication: Product used for unknown indication
     Dosage: 50 MILLIGRAM, QD OM (EVERY MORNING)
     Route: 065
  28. SERTRALINE [Suspect]
     Active Substance: SERTRALINE HYDROCHLORIDE
     Dosage: OM (EVERY MORNING)
     Route: 042
     Dates: start: 20171103, end: 20171106
  29. BENDROFLUMETHIAZIDE [Suspect]
     Active Substance: BENDROFLUMETHIAZIDE
     Indication: Product used for unknown indication
     Dosage: 2.5 MILLIGRAM, DAILY 2.5 MG, DAILY (EVERY MORNING)
     Route: 065
  30. BENDROFLUMETHIAZIDE [Suspect]
     Active Substance: BENDROFLUMETHIAZIDE
     Dosage: 2 MILLIGRAM, QD
     Route: 065
     Dates: start: 20171103, end: 20171103
  31. BENDROFLUMETHIAZIDE [Suspect]
     Active Substance: BENDROFLUMETHIAZIDE
     Dosage: 10 MILLIGRAM, QD
     Route: 065
  32. BENDROFLUMETHIAZIDE [Suspect]
     Active Substance: BENDROFLUMETHIAZIDE
     Dosage: 3 MILLIGRAM
     Route: 065
  33. BENDROFLUMETHIAZIDE [Suspect]
     Active Substance: BENDROFLUMETHIAZIDE
     Dosage: 2 MILLIGRAM
     Route: 065
     Dates: start: 20171110, end: 20171114
  34. BENDROFLUMETHIAZIDE [Suspect]
     Active Substance: BENDROFLUMETHIAZIDE
     Dosage: 1.8 MG/M2 Q_CYCLE / 1.3 MG/M2 DAILY /1.8UNK
     Route: 065
  35. FENTANYL [Suspect]
     Active Substance: FENTANYL
     Indication: Product used for unknown indication
     Dosage: 12 MICROGRAM
     Route: 062
     Dates: start: 20171108
  36. FENTANYL [Suspect]
     Active Substance: FENTANYL
     Indication: Product used for unknown indication
     Dosage: 12 MICROGRAM, Q1H 12 UG, Q1HR, FENTANYL PATCH
     Route: 062
     Dates: start: 20171108
  37. FENTANYL [Suspect]
     Active Substance: FENTANYL
     Dosage: 4 MILLIGRAM
     Route: 062
     Dates: start: 20171108
  38. FENTANYL [Suspect]
     Active Substance: FENTANYL
     Dosage: 4 MILLIGRAM 12 UG/INHAL
     Route: 055
  39. FENTANYL [Suspect]
     Active Substance: FENTANYL
     Dosage: 12 MILLIGRAM, QD 12 UG, Q1HR, FENTANYL PATCH
     Route: 062
  40. METOCLOPRAMIDE [Suspect]
     Active Substance: METOCLOPRAMIDE
     Indication: Product used for unknown indication
     Dosage: 10 MILLIGRAM, PRN 10 MG, PRN (AS NECESSARY)
     Route: 065
  41. OMEPRAZOLE [Suspect]
     Active Substance: OMEPRAZOLE
     Indication: Product used for unknown indication
     Dosage: 20 MILLIGRAM, DAILY (EVERY MORNING)
     Route: 048
  42. OMEPRAZOLE [Suspect]
     Active Substance: OMEPRAZOLE
     Dosage: 70 MILLIGRAM, DAILY
     Route: 048
     Dates: start: 20171103
  43. PREDNISOLONE [Suspect]
     Active Substance: PREDNISOLONE
     Indication: Plasma cell leukaemia
     Dosage: UNK, DAILY CYCLE 1, VMP REGIMEN () ; CYCLICAL, DAILY
     Route: 065
  44. PREDNISOLONE [Suspect]
     Active Substance: PREDNISOLONE
     Dosage: 70 MILLIGRAM, DAILY VMP REGIMEN, DAY 1 TO 4, CYCLE 2
     Route: 065
     Dates: start: 20171103, end: 20171106
  45. RAMIPRIL [Suspect]
     Active Substance: RAMIPRIL
     Indication: Product used for unknown indication
     Dosage: 10 MILLIGRAM, DAILY 10 MG, DAILY (EVERY MORNING)
     Route: 065
  46. SODIUM CHLORIDE [Suspect]
     Active Substance: SODIUM CHLORIDE
     Indication: Medication dilution
     Dosage: DAY 8 OF CYCLE 2, VMP REGIMEN, COMPOUNDED WITH BORTEZOMIB; CYCLICAL
     Route: 041
     Dates: start: 20171110, end: 20171114
  47. SODIUM CHLORIDE [Suspect]
     Active Substance: SODIUM CHLORIDE
     Dosage: DAY 1 OF CYCLE 2, VMP REGIMEN, COMPOUNDED WITH BORTEZOMIB () ; CYCLICAL
     Route: 042
     Dates: start: 20171103, end: 20171106
  48. SODIUM CHLORIDE [Suspect]
     Active Substance: SODIUM CHLORIDE
     Dosage: DAY 4 OF CYCLE 2, VMP REGIMEN, COMPOUNDED WITH BORTEZOMIB () ; CYCLICAL
     Route: 042
     Dates: start: 20171106, end: 20171106
  49. SODIUM CHLORIDE [Suspect]
     Active Substance: SODIUM CHLORIDE
     Dosage: UNK
     Route: 041
     Dates: start: 20171110, end: 20171114
  50. SODIUM CHLORIDE [Suspect]
     Active Substance: SODIUM CHLORIDE
     Dosage: UNK
     Route: 041
     Dates: start: 20171107, end: 201711
  51. SODIUM CHLORIDE [Suspect]
     Active Substance: SODIUM CHLORIDE
     Dosage: UNK, QD (CYCLICAL) 0.9 %; SOLUTION FOR INFUSION DAY 1 OF CYCLE 2, VMP REGIMEN, COMPOUNDED WITH BORT
     Route: 065
     Dates: start: 20171110, end: 20171110
  52. SODIUM CHLORIDE [Suspect]
     Active Substance: SODIUM CHLORIDE
     Dosage: UNK
     Route: 065
  53. SODIUM CHLORIDE [Suspect]
     Active Substance: SODIUM CHLORIDE
     Dosage: UNK
     Route: 041
     Dates: start: 20171103, end: 20171103
  54. VELCADE [Suspect]
     Active Substance: BORTEZOMIB
     Indication: Plasma cell leukaemia
     Dosage: 1.3 MILLIGRAM/SQ. METER, QD DOSAGE FORM: LYOPHILIZED POWDER, DAY 4 OF CYCLE 2, DOSE AS 2 MG, COMPOUN
     Route: 058
     Dates: start: 20171106, end: 20171106
  55. VELCADE [Suspect]
     Active Substance: BORTEZOMIB
     Dosage: 1.3 MILLIGRAM/SQ. METER 1.3 MILLIGRAM/SQ. METER (DOSAGE FORM: LYOPHILIZED POWDER, DAY 8 OF CYCLE 2,
     Route: 058
     Dates: start: 20171110, end: 20171110
  56. VELCADE [Suspect]
     Active Substance: BORTEZOMIB
     Dosage: UNK (DOSAGE FORM: LYOPHILIZED POWDER, CYCLE 1, ON DAYS 1, 4, 8, 11, 22, 25, 29 AND 32 () ; CYCLICAL)
     Route: 058
  57. VELCADE [Suspect]
     Active Substance: BORTEZOMIB
     Dosage: 1.3 MILLIGRAM/SQ. METER (DOSAGE FORM: LYOPHILIZED POWDER, ON DAYS 1, 4, 8, 11, 22, 25, 29, 32, DAY 1
     Route: 058
     Dates: start: 20171103, end: 20171103
  58. VELCADE [Suspect]
     Active Substance: BORTEZOMIB
     Dosage: 1.8 MILLIGRAM 1.8 MG, UNK
     Route: 058
     Dates: start: 20171110, end: 201711
  59. VELCADE [Suspect]
     Active Substance: BORTEZOMIB
     Dosage: 1.8 MILLIGRAM
     Route: 058
     Dates: start: 20171107, end: 201711
  60. VELCADE [Suspect]
     Active Substance: BORTEZOMIB
     Dosage: 9 MILLIGRAM/SQ. METER, QD (CYCLICAL; DOSAGE FORM: LYOPHILIZED POWDER, ON DAYS 1, 4, 8, 11,22, 25, 29
     Route: 058
     Dates: start: 20171103, end: 20171103
  61. VELCADE [Suspect]
     Active Substance: BORTEZOMIB
     Dosage: UNK, DAILY (CYCLICAL) DOSAGE FORM: LYOPHILIZED POWDER, CYCLE 1, ON DAYS 1,4, 8, 11, 22, 25, 29 AND 3
     Route: 058
  62. VELCADE [Suspect]
     Active Substance: BORTEZOMIB
     Dosage: 1.8 MILLIGRAM
     Route: 058
     Dates: start: 20171110, end: 20171114
  63. VELCADE [Suspect]
     Active Substance: BORTEZOMIB
     Dosage: 1.8 MILLIGRAM
     Route: 058
     Dates: start: 20171110, end: 201711
  64. VELCADE [Suspect]
     Active Substance: BORTEZOMIB
     Dosage: 1 MILLIGRAM/SQ. METER
     Route: 058
     Dates: start: 20171106, end: 20171106
  65. VELCADE [Suspect]
     Active Substance: BORTEZOMIB
     Dosage: 2 MILLIGRAM/SQ. METER LYOPHILIZED POWDER
     Route: 058
     Dates: start: 20171110, end: 20171114
  66. VELCADE [Suspect]
     Active Substance: BORTEZOMIB
     Dosage: 2 MILLIGRAM/SQ. METER
     Route: 058
     Dates: start: 20171103, end: 20171103
  67. VELCADE [Suspect]
     Active Substance: BORTEZOMIB
     Dosage: 2 MILLIGRAM/SQ. METER
     Route: 058
     Dates: start: 201711, end: 201711
  68. BENDROFLUMETHIAZIDE [Concomitant]
     Active Substance: BENDROFLUMETHIAZIDE
     Indication: Product used for unknown indication
     Dosage: 2.5 MILLIGRAM, QD
     Route: 065
  69. METOCLOPRAMIDE [Concomitant]
     Active Substance: METOCLOPRAMIDE
     Indication: Product used for unknown indication
     Dosage: 10 MILLIGRAM
     Route: 065
  70. OMEPRAZOLE [Concomitant]
     Active Substance: OMEPRAZOLE
     Indication: Product used for unknown indication
     Dosage: 20 MILLIGRAM
     Route: 065
  71. RAMIPRIL [Concomitant]
     Active Substance: RAMIPRIL
     Indication: Product used for unknown indication
     Dosage: 10 MILLIGRAM, QD, EVERY MORNING
     Route: 065
  72. SERTRALINE [Concomitant]
     Active Substance: SERTRALINE HYDROCHLORIDE
     Indication: Product used for unknown indication
     Dosage: 50 MILLIGRAM
     Route: 065

REACTIONS (14)
  - Emotional distress [Not Recovered/Not Resolved]
  - Abnormal behaviour [Recovered/Resolved]
  - Confusional state [Recovered/Resolved]
  - Agitation [Recovered/Resolved]
  - Hallucination [Recovered/Resolved]
  - Off label use [Unknown]
  - Product use in unapproved indication [Unknown]
  - Disorientation [Recovered/Resolved]
  - Disturbance in social behaviour [Recovered/Resolved]
  - Paranoia [Recovered/Resolved]
  - Drug abuse [Unknown]
  - Medication error [Unknown]
  - Intentional product misuse [Unknown]
  - Incorrect route of product administration [Unknown]

NARRATIVE: CASE EVENT DATE: 20171107
